FAERS Safety Report 5441252-9 (Version None)
Quarter: 2007Q3

REPORT INFORMATION
  Report Type: 
  Country: None (occurrence: None)
  Receive Date: 20070901
  Receipt Date: 20070821
  Transmission Date: 20080115
  Serious: Yes (Other)
  Sender: FDA-Public Use
  Company Number: US-PFIZER INC-2007071075

PATIENT
  Sex: Female
  Weight: 65.3 kg

DRUGS (4)
  1. LYRICA [Suspect]
     Indication: NEUROPATHY
     Dates: start: 20070813, end: 20070821
  2. PRILOSEC [Concomitant]
  3. METHOTREXATE [Concomitant]
  4. FOLIC ACID [Concomitant]

REACTIONS (4)
  - BURNING SENSATION [None]
  - DYSPHAGIA [None]
  - UPPER RESPIRATORY TRACT CONGESTION [None]
  - VOMITING [None]
